FAERS Safety Report 18985745 (Version 1)
Quarter: 2021Q1

REPORT INFORMATION
  Report Type: Spontaneous
  Country: US (occurrence: US)
  Receive Date: 20210309
  Receipt Date: 20210309
  Transmission Date: 20210420
  Serious: Yes (Other)
  Sender: FDA-Public Use
  Company Number: US-BAUSCH-BL-2021-007429

PATIENT
  Sex: Male

DRUGS (2)
  1. UCERIS [Suspect]
     Active Substance: BUDESONIDE
     Indication: CROHN^S DISEASE
     Route: 048
  2. UCERIS [Suspect]
     Active Substance: BUDESONIDE
     Indication: PRODUCT USE IN UNAPPROVED INDICATION

REACTIONS (6)
  - Product use in unapproved indication [Unknown]
  - Crohn^s disease [Not Recovered/Not Resolved]
  - Product prescribing error [Unknown]
  - Gastrointestinal pain [Unknown]
  - Drug ineffective for unapproved indication [Unknown]
  - Pain [Unknown]
